FAERS Safety Report 23284518 (Version 1)
Quarter: 2023Q4

REPORT INFORMATION
  Report Type: Spontaneous
  Country: TN (occurrence: TN)
  Receive Date: 20231211
  Receipt Date: 20231211
  Transmission Date: 20240110
  Serious: Yes (Other)
  Sender: FDA-Public Use
  Company Number: TN-TASMAN PHARMA, INC.-2023TSM00194

PATIENT
  Age: 29 Year
  Sex: Female

DRUGS (8)
  1. CLOZAPINE [Suspect]
     Active Substance: CLOZAPINE
     Indication: Schizophrenia
     Dosage: 12.5 MG, 1X/DAY
  2. CLOZAPINE [Suspect]
     Active Substance: CLOZAPINE
     Dosage: 25 MG, 1X/DAY
  3. CLOZAPINE [Suspect]
     Active Substance: CLOZAPINE
     Dosage: INCREASED WITH 25 MG OR 50 MG, 1X/DAY EACH WEEK
  4. CLOZAPINE [Suspect]
     Active Substance: CLOZAPINE
     Dosage: 300 MG, IN THE MORNING (TOTAL CLOZAPINE DOSE OF 650 MG/DAY)
  5. CLOZAPINE [Suspect]
     Active Substance: CLOZAPINE
     Dosage: 350 MG, IN THE EVENING (TOTAL CLOZAPINE DOSE 650 MG/DAY)
  6. CLOZAPINE [Suspect]
     Active Substance: CLOZAPINE
     Dosage: QUICK DECREASE WITH CAREFUL MONITORING
  7. CLOZAPINE [Suspect]
     Active Substance: CLOZAPINE
     Dosage: 300 MG, 1X/DAY
  8. CLOZAPINE [Suspect]
     Active Substance: CLOZAPINE
     Dosage: 600 MG, 1X/DAY

REACTIONS (3)
  - Dysphemia [Recovered/Resolved]
  - Dyskinesia [Recovered/Resolved]
  - Electroencephalogram abnormal [Recovered/Resolved]
